FAERS Safety Report 8803986 (Version 1)
Quarter: 2012Q4

REPORT INFORMATION
  Report Type: 
  Country: JP (occurrence: JP)
  Receive Date: 20120924
  Receipt Date: 20120924
  Transmission Date: 20130627
  Serious: Yes (Other)
  Sender: FDA-Public Use
  Company Number: JP-ASTRAZENECA-2012SE69699

PATIENT
  Sex: Male

DRUGS (3)
  1. OMEPRAL [Suspect]
     Route: 048
  2. FUNGUARD [Suspect]
     Indication: PNEUMONIA ASPIRATION
     Route: 065
     Dates: start: 201208
  3. FINIBAX [Concomitant]
     Route: 065

REACTIONS (2)
  - Pneumonia aspiration [Unknown]
  - Platelet count decreased [Unknown]
